FAERS Safety Report 24765583 (Version 1)
Quarter: 2024Q4

REPORT INFORMATION
  Report Type: Spontaneous
  Country: US (occurrence: None)
  Receive Date: 20241221
  Receipt Date: 20241221
  Transmission Date: 20250115
  Serious: Yes (Death, Hospitalization)
  Sender: Public
  Company Number: None

PATIENT
  Sex: Female
  Weight: 42.5 kg

DRUGS (3)
  1. CYCLOPHOSPHAMIDE [Suspect]
     Active Substance: CYCLOPHOSPHAMIDE
  2. DACTINOMYCIN [Suspect]
     Active Substance: DACTINOMYCIN
  3. VINCRISTINE SULFATE [Suspect]
     Active Substance: VINCRISTINE SULFATE

REACTIONS (9)
  - Pneumocystis jirovecii pneumonia [None]
  - Pneumonia cytomegaloviral [None]
  - Ultrasound liver abnormal [None]
  - Infection [None]
  - Febrile neutropenia [None]
  - Acute lung injury [None]
  - Acute respiratory distress syndrome [None]
  - Lymphopenia [None]
  - Secondary immunodeficiency [None]

NARRATIVE: CASE EVENT DATE: 20231114
